FAERS Safety Report 22298553 (Version 2)
Quarter: 2023Q2

REPORT INFORMATION
  Report Type: Spontaneous
  Country: ES (occurrence: None)
  Receive Date: 20230509
  Receipt Date: 20230517
  Transmission Date: 20230722
  Serious: Yes (Hospitalization, Other)
  Sender: FDA-Public Use
  Company Number: 2023A103546

PATIENT
  Age: 94 Year
  Sex: Male

DRUGS (21)
  1. LOSEC [Suspect]
     Active Substance: OMEPRAZOLE
  2. METOPROLOL [Interacting]
     Active Substance: METOPROLOL
  3. QUETIAPINE [Interacting]
     Active Substance: QUETIAPINE
     Dosage: 0-0-1
     Route: 048
     Dates: start: 20230208
  4. CLONAZEPAM [Suspect]
     Active Substance: CLONAZEPAM
     Indication: Agitation
     Route: 048
     Dates: start: 2022, end: 20230418
  5. CLONAZEPAM [Suspect]
     Active Substance: CLONAZEPAM
     Indication: Agitation
     Route: 048
     Dates: start: 20230419
  6. BUPRENORPHINE [Interacting]
     Active Substance: BUPRENORPHINE
     Indication: Pain
     Dosage: 20 MG EVERY 48 HOURS
     Route: 062
     Dates: start: 20230419
  7. RIVOTRIL [Interacting]
     Active Substance: CLONAZEPAM
     Indication: Agitation
     Route: 048
     Dates: start: 2022, end: 20230418
  8. RIVOTRIL [Interacting]
     Active Substance: CLONAZEPAM
     Indication: Agitation
     Route: 048
     Dates: start: 20230419
  9. HALOPERIDOL [Interacting]
     Active Substance: HALOPERIDOL
     Indication: Agitation
     Dosage: 50 DROPS, 5-10-35 AND 5-10-50
     Route: 048
     Dates: start: 20230419, end: 20230424
  10. ZALDIAR [Interacting]
     Active Substance: ACETAMINOPHEN\TRAMADOL HYDROCHLORIDE
     Indication: Pain
     Route: 048
     Dates: start: 2022, end: 20230407
  11. ZALDIAR [Interacting]
     Active Substance: ACETAMINOPHEN\TRAMADOL HYDROCHLORIDE
     Indication: Pain
     Route: 048
     Dates: start: 20230408, end: 20230424
  12. EPLERENONE [Interacting]
     Active Substance: EPLERENONE
  13. FUROSEMIDE [Interacting]
     Active Substance: FUROSEMIDE
  14. EDOXABAN [Interacting]
     Active Substance: EDOXABAN
  15. DUTASTERIDE\TAMSULOSIN [Interacting]
     Active Substance: DUTASTERIDE\TAMSULOSIN
  16. DUTASTERIDE\TAMSULOSIN [Interacting]
     Active Substance: DUTASTERIDE\TAMSULOSIN
  17. LEVOTHYROXINE SODIUM [Interacting]
     Active Substance: LEVOTHYROXINE SODIUM
  18. CALCIFEDIOL [Interacting]
     Active Substance: CALCIFEDIOL
     Dosage: 1 AMPOULE PER MONTH
  19. METAMIZOLE MAGNESIUM [Interacting]
     Active Substance: METAMIZOLE MAGNESIUM
  20. MOVICOL [Interacting]
     Active Substance: POLYETHYLENE GLYCOL 3350\POTASSIUM CHLORIDE\SODIUM BICARBONATE\SODIUM CHLORIDE
  21. ACETAMINOPHEN [Interacting]
     Active Substance: ACETAMINOPHEN
     Dates: start: 20150210

REACTIONS (5)
  - Pneumonia aspiration [Recovering/Resolving]
  - Depressed level of consciousness [Recovered/Resolved]
  - Acute kidney injury [Unknown]
  - Toxicity to various agents [Unknown]
  - Urinary tract infection [Unknown]

NARRATIVE: CASE EVENT DATE: 20230423
